FAERS Safety Report 5646617-8 (Version None)
Quarter: 2008Q1

REPORT INFORMATION
  Report Type: 
  Country: None (occurrence: None)
  Receive Date: 20080303
  Receipt Date: 20080221
  Transmission Date: 20080703
  Serious: Yes (Hospitalization, Other)
  Sender: FDA-Public Use
  Company Number: PHHY2008JP02090

PATIENT

DRUGS (3)
  1. DIOVAN [Suspect]
     Indication: HYPERTENSION
     Route: 048
  2. PRAMIPEXOLE DIHYDROCHLORIDE [Suspect]
     Route: 048
  3. SELEGILINE HCL [Concomitant]
     Route: 048

REACTIONS (2)
  - GENERAL PHYSICAL HEALTH DETERIORATION [None]
  - INTERSTITIAL LUNG DISEASE [None]
